FAERS Safety Report 23856978 (Version 1)
Quarter: 2024Q2

REPORT INFORMATION
  Report Type: Spontaneous
  Country: AU (occurrence: AU)
  Receive Date: 20240515
  Receipt Date: 20240515
  Transmission Date: 20240716
  Serious: Yes (Death)
  Sender: FDA-Public Use
  Company Number: AU-MLMSERVICE-20240430-PI045250-00201-1

PATIENT
  Age: 7 Decade
  Sex: Female

DRUGS (4)
  1. LIDOCAINE [Suspect]
     Active Substance: LIDOCAINE
     Indication: Ventricular tachycardia
     Dosage: 1 MG/KG/HR FOR 1HR, CONTINUOUS
     Route: 042
  2. LIDOCAINE [Suspect]
     Active Substance: LIDOCAINE
     Dosage: 5.4 MG/KG/HOUR FOR 1 HOURS, DOWN TO
     Route: 065
  3. LIDOCAINE [Suspect]
     Active Substance: LIDOCAINE
     Dosage: 8 MG/KG/HOUR FOR 1 HOURS, INCREASED
     Route: 065
  4. LIDOCAINE [Suspect]
     Active Substance: LIDOCAINE
     Dosage: LOADING DOSE, 1 {TOTAL}
     Route: 042

REACTIONS (3)
  - Death [Fatal]
  - Product administration error [Unknown]
  - Overdose [Unknown]
